FAERS Safety Report 5779810-4 (Version None)
Quarter: 2008Q2

REPORT INFORMATION
  Report Type: 
  Country: None (occurrence: None)
  Receive Date: 20080618
  Receipt Date: 20080603
  Transmission Date: 20081010
  Serious: No
  Sender: FDA-Public Use
  Company Number: B0524690A

PATIENT
  Age: 49 Year
  Sex: Male

DRUGS (4)
  1. LAMIVUDINE [Suspect]
     Indication: HIV INFECTION
     Dosage: 150 MG, TWICE PER DAY;
  2. ZIDOVUDINE [Suspect]
     Indication: HIV INFECTION
     Dosage: 250 MG, TWICE PER DAY;
  3. STAVUDINE [Suspect]
     Indication: HIV INFECTION
     Dosage: 30 MG, TWICE PER DAY;
  4. NELFINAVIR MESYLATE (FORMULATION UNKNOWN) (NELFINAVIR MESYLATE) [Suspect]
     Indication: HIV INFECTION
     Dosage: 1250 MG TWICE PER DAY;

REACTIONS (7)
  - BLOOD CHOLESTEROL INCREASED [None]
  - BLOOD TRIGLYCERIDES INCREASED [None]
  - HAEMANGIOMA [None]
  - LIPOATROPHY [None]
  - LOW DENSITY LIPOPROTEIN INCREASED [None]
  - MITOCHONDRIAL TOXICITY [None]
  - NEOPLASM PROGRESSION [None]
